FAERS Safety Report 18974883 (Version 3)
Quarter: 2021Q1

REPORT INFORMATION
  Report Type: Spontaneous
  Country: US (occurrence: US)
  Receive Date: 20210305
  Receipt Date: 20210323
  Transmission Date: 20210420
  Serious: Yes (Other)
  Sender: FDA-Public Use
  Company Number: US-ALLERGAN-2108417US

PATIENT
  Sex: Female

DRUGS (1)
  1. DURYSTA [Suspect]
     Active Substance: BIMATOPROST
     Indication: INTRAOCULAR PRESSURE INCREASED
     Dosage: 0.01 MG, SINGLE
     Route: 031

REACTIONS (3)
  - Non-infectious endophthalmitis [Recovered/Resolved]
  - Hypopyon [Recovered/Resolved]
  - Toxic anterior segment syndrome [Recovered/Resolved]
